FAERS Safety Report 25724648 (Version 1)
Quarter: 2025Q3

REPORT INFORMATION
  Report Type: Spontaneous
  Country: TR (occurrence: TR)
  Receive Date: 20250826
  Receipt Date: 20250826
  Transmission Date: 20251021
  Serious: Yes (Hospitalization)
  Sender: CHEPLAPHARM
  Company Number: TR-BMED-L-2025-0017

PATIENT
  Age: 86 Year
  Sex: Male

DRUGS (15)
  1. OLANZAPINE [Suspect]
     Active Substance: OLANZAPINE
  2. PROPRANOLOL [Suspect]
     Active Substance: PROPRANOLOL HYDROCHLORIDE
  3. OMEPRAZOLE [Suspect]
     Active Substance: OMEPRAZOLE
  4. QUETIAPINE [Suspect]
     Active Substance: QUETIAPINE
  5. DENOSUMAB [Suspect]
     Active Substance: DENOSUMAB
  6. DONEPEZIL [Suspect]
     Active Substance: DONEPEZIL
  7. ALPRAZOLAM [Suspect]
     Active Substance: ALPRAZOLAM
  8. SALICYLATE [Suspect]
     Active Substance: SALICYLIC ACID
  9. PRAMIPEXOLE [Suspect]
     Active Substance: PRAMIPEXOLE
  10. RASAGILINE MESYLATE [Suspect]
     Active Substance: RASAGILINE MESYLATE
  11. CITALOPRAM [Suspect]
     Active Substance: CITALOPRAM
  12. PREGABALIN [Suspect]
     Active Substance: PREGABALIN
  13. TRAMADOL [Suspect]
     Active Substance: TRAMADOL
  14. PRIMIDONE [Suspect]
     Active Substance: PRIMIDONE
  15. HYDROCHLOROTHIAZIDE\IRBESARTAN [Suspect]
     Active Substance: HYDROCHLOROTHIAZIDE\IRBESARTAN

REACTIONS (3)
  - Anticholinergic syndrome [Recovered/Resolved]
  - Serotonin syndrome [Recovered/Resolved]
  - Neuroleptic malignant syndrome [Recovered/Resolved]
